FAERS Safety Report 7941155-1 (Version None)
Quarter: 2011Q4

REPORT INFORMATION
  Report Type: 
  Country: None (occurrence: None)
  Receive Date: 20111128
  Receipt Date: 20111117
  Transmission Date: 20120403
  Serious: Yes (Other)
  Sender: FDA-Public Use
  Company Number: AE-JNJFOC-20111108283

PATIENT
  Sex: Female
  Weight: 66 kg

DRUGS (3)
  1. LORAZEPAM [Concomitant]
     Indication: AGITATION
     Route: 065
     Dates: start: 20111101
  2. INVEGA [Suspect]
     Indication: PRODUCT USED FOR UNKNOWN INDICATION
     Route: 065
     Dates: start: 20111102, end: 20111110
  3. ESCITALOPRAM [Concomitant]
     Indication: DEPRESSION
     Route: 065
     Dates: start: 20111103

REACTIONS (2)
  - HYPOTHYROIDISM [None]
  - TACHYCARDIA [None]
